FAERS Safety Report 6214618-7 (Version None)
Quarter: 2009Q2

REPORT INFORMATION
  Report Type: 
  Country: None (occurrence: None)
  Receive Date: 20090604
  Receipt Date: 20090523
  Transmission Date: 20091009
  Serious: Yes (Death)
  Sender: FDA-Public Use
  Company Number: TW-PFIZER INC-2009196233

PATIENT
  Age: 44 Year

DRUGS (48)
  1. SUTENT [Suspect]
     Indication: COLON CANCER
     Dosage: 50 MG, 1X/DAY
     Route: 048
     Dates: start: 20090220, end: 20090224
  2. CELEBREX [Concomitant]
     Indication: COLON CANCER
     Dosage: 200 MG, 2X/DAY
     Route: 048
     Dates: start: 20090220, end: 20090224
  3. ATIVAN [Concomitant]
     Dosage: 0.5 MG, 2 TABLET, HS
     Route: 048
     Dates: start: 20090219, end: 20090224
  4. ATIVAN [Concomitant]
     Dosage: 0.5 MG, 1 TABLET, STAT
     Route: 048
     Dates: start: 20090225, end: 20090225
  5. MORPHINE [Concomitant]
     Dosage: 1MG/1ML, 5 ML, Q4H PRN
     Route: 048
     Dates: start: 20090219, end: 20090220
  6. MORPHINE [Concomitant]
     Dosage: 10MG/1ML, 3MG, Q6H
     Route: 042
     Dates: start: 20090225, end: 20090225
  7. MORPHINE [Concomitant]
     Dosage: 10MG/1ML, 2MG, Q4H
     Route: 048
     Dates: start: 20090225, end: 20090225
  8. MORPHINE [Concomitant]
     Dosage: 1MG/1ML, 3ML, Q4H
     Route: 048
     Dates: start: 20090220, end: 20090220
  9. MORPHINE [Concomitant]
     Dosage: 1MG/1ML, 5ML, Q4H,PRN
     Route: 048
     Dates: start: 20090220, end: 20090224
  10. MORPHINE [Concomitant]
     Dosage: 1MG/1ML, 3ML, Q6H
     Route: 048
     Dates: start: 20090224, end: 20090225
  11. MORPHINE [Concomitant]
     Dosage: 10MG/1ML, 2MGL, Q6H
     Route: 042
     Dates: start: 20090225, end: 20090225
  12. MORPHINE [Concomitant]
     Dosage: 10MG/1ML, 1MG,  Q6H
     Route: 042
     Dates: start: 20090225, end: 20090226
  13. MORPHINE [Concomitant]
     Dosage: 10MG/1ML, 2MG, Q6H
     Route: 042
     Dates: start: 20090225, end: 20090226
  14. MORPHINE [Concomitant]
     Dosage: 10MG/1ML, 3MG, Q4H
     Route: 042
     Dates: start: 20090226, end: 20090227
  15. MORPHINE [Concomitant]
     Dosage: 10MG/1ML, 1MG, STAT
     Route: 042
     Dates: start: 20090227, end: 20090227
  16. MORPHINE [Concomitant]
     Dosage: 10MG/1ML, 50MG, QD INFUSION
     Dates: start: 20090227, end: 20090228
  17. DULCOLAX [Concomitant]
     Dosage: 5 MG, 2 TABLETS, HS
     Route: 048
     Dates: start: 20090219, end: 20090225
  18. DULCOLAX [Concomitant]
     Dosage: 10MG/PILL, 2 PILLS QD
     Route: 054
     Dates: start: 20090226, end: 20090226
  19. SOLU-CORTEF [Concomitant]
     Dosage: 100 MG, STAT
     Route: 042
     Dates: start: 20090219, end: 20090219
  20. SOLU-CORTEF [Concomitant]
     Dosage: 100 MG, UNK
     Route: 042
     Dates: start: 20090225, end: 20090225
  21. SOLU-CORTEF [Concomitant]
     Dosage: 100 MG, UNK
     Route: 042
     Dates: start: 20090223, end: 20090223
  22. SOLU-CORTEF [Concomitant]
     Dosage: 100 MG, STAT
     Route: 042
     Dates: start: 20090224, end: 20090224
  23. SOLU-CORTEF [Concomitant]
     Dosage: 100 MG, STAT
     Dates: start: 20090227, end: 20090227
  24. ACETYLCYSTEINE [Concomitant]
     Dosage: 300 MG/3 ML, 600 MG, BID
     Route: 048
     Dates: start: 20090220, end: 20090221
  25. NACID [Concomitant]
     Dosage: 500 MG, 1 TABLET, TID
     Route: 048
     Dates: start: 20090222, end: 20090222
  26. NEXIUM [Concomitant]
     Dosage: 40 MG, 1 TABLET, STAT
     Route: 048
     Dates: start: 20090223, end: 20090223
  27. NEXIUM [Concomitant]
     Dosage: 40 MG, 1 TABLET, QD
     Route: 048
     Dates: start: 20090223, end: 20090225
  28. DIPHENHYDRAMINE [Concomitant]
     Dosage: 100 MG, STAT
     Route: 042
     Dates: start: 20090223, end: 20090223
  29. DOXYCYCLINE [Concomitant]
     Dosage: 100 MG, STAT
     Route: 048
     Dates: start: 20090223, end: 20090223
  30. DOXYCYCLINE [Concomitant]
     Dosage: 100 MG, BID
     Route: 048
     Dates: start: 20090223, end: 20090224
  31. PRIMPERAN [Concomitant]
     Dosage: 10MG/2ML, STAT
     Route: 042
     Dates: start: 20090224, end: 20090224
  32. PRIMPERAN [Concomitant]
     Dosage: 10MG/2ML, Q8H
     Dates: start: 20090224, end: 20090225
  33. PRIMPERAN [Concomitant]
     Dosage: 10MG/2ML, Q8H
     Route: 042
     Dates: start: 20090226, end: 20090228
  34. PRIMPERAN [Concomitant]
     Dosage: 10MG/2ML,, Q8H
     Dates: start: 20090224, end: 20090224
  35. NOVAMIN [Concomitant]
     Dosage: 5MG/1ML, STAT
     Route: 030
     Dates: start: 20090225, end: 20090225
  36. GASCON [Concomitant]
     Dosage: 40 MG, 2 TABLET, STAT
     Route: 048
     Dates: start: 20090225, end: 20090225
  37. TRANDATE [Concomitant]
     Dosage: 25MG75ML, 12.5MG, STAT
     Route: 042
     Dates: start: 20090225, end: 20090225
  38. FUROSEMIDE [Concomitant]
     Dosage: 20MG/2ML, 10MG,STAT
     Route: 042
     Dates: start: 20090225, end: 20090225
  39. FUROSEMIDE [Concomitant]
     Dosage: 20MG/2ML, 20MG, Q6
     Route: 042
     Dates: start: 20090226, end: 20090226
  40. FUROSEMIDE [Concomitant]
     Dosage: 20MG/2ML, 20MG, Q8H
     Route: 042
     Dates: start: 20090226, end: 20090226
  41. FUROSEMIDE [Concomitant]
     Dosage: 20MG/2ML, 20MG, Q8H
     Dates: start: 20090225, end: 20090226
  42. LOSEC [Concomitant]
     Dosage: 40 MG, QD
     Route: 042
     Dates: start: 20090226, end: 20090228
  43. BUMEX [Concomitant]
     Dosage: 2MG/4ML, 2MG, STAT
     Route: 042
     Dates: start: 20090226, end: 20090226
  44. BUMEX [Concomitant]
     Dosage: 2MG/4ML, 2MG, Q 8H
     Route: 042
     Dates: start: 20090227, end: 20090227
  45. BUMEX [Concomitant]
     Dosage: 2MG/4ML, 24MG QD INFUSION
     Dates: start: 20090227, end: 20090228
  46. TAMSULOSIN HYDROCHLORIDE [Concomitant]
     Dosage: 0.2 MG, 1 TABLET HS
     Dates: start: 20090226, end: 20090228
  47. AVASTIN [Concomitant]
     Dosage: 300 MG, 1X/DAY, INFUSION
     Dates: start: 20090219
  48. RINDERON [Concomitant]
     Dosage: 4 MG, QD
     Route: 042
     Dates: start: 20090219

REACTIONS (1)
  - MICROANGIOPATHIC HAEMOLYTIC ANAEMIA [None]
